FAERS Safety Report 9797910 (Version 1)
Quarter: 2014Q1

REPORT INFORMATION
  Report Type: Spontaneous
  Country: FR (occurrence: FR)
  Receive Date: 20140106
  Receipt Date: 20140106
  Transmission Date: 20141002
  Serious: Yes (Hospitalization)
  Sender: FDA-Public Use
  Company Number: FR-AMGEN-FRASP2013091508

PATIENT
  Age: 81 Year
  Sex: Male

DRUGS (6)
  1. NPLATE [Suspect]
     Indication: IMMUNE THROMBOCYTOPENIC PURPURA
     Dosage: 160 MUG, QWK
     Route: 065
     Dates: start: 20130914
  2. AZANTAC [Concomitant]
     Dosage: 300 UNK, QD
  3. SPAGULAX [Concomitant]
     Dosage: UNK, QD
  4. GAVISCON                           /00237601/ [Concomitant]
     Dosage: UNK UNK, QD
  5. XATRAL [Concomitant]
     Dosage: 10 UNK, QD
  6. PIASCLEDINE                        /00809501/ [Concomitant]
     Dosage: 300 UNK, QD

REACTIONS (3)
  - Dyspnoea exertional [Not Recovered/Not Resolved]
  - Pyrexia [Not Recovered/Not Resolved]
  - Interstitial lung disease [Not Recovered/Not Resolved]
